FAERS Safety Report 12621852 (Version 1)
Quarter: 2016Q3

REPORT INFORMATION
  Report Type: Spontaneous
  Country: IN (occurrence: None)
  Receive Date: 20160803
  Receipt Date: 20160803
  Transmission Date: 20161109
  Serious: Yes (Other)
  Sender: FDA-Public Use
  Company Number: None

PATIENT
  Age: 29 Year
  Sex: Male
  Weight: 70 kg

DRUGS (1)
  1. HIFENAC - P, 100 + 325 MG [Suspect]
     Active Substance: ACECLOFENAC\ACETAMINOPHEN
     Indication: BACK PAIN
     Route: 048
     Dates: start: 20160729, end: 20160730

REACTIONS (2)
  - Cough [None]
  - Chest pain [None]

NARRATIVE: CASE EVENT DATE: 20160730
